FAERS Safety Report 19960156 (Version 3)
Quarter: 2025Q1

REPORT INFORMATION
  Report Type: Spontaneous
  Country: US (occurrence: US)
  Receive Date: 20211015
  Receipt Date: 20250218
  Transmission Date: 20250409
  Serious: No
  Sender: MYLAN
  Company Number: US-MYLANLABS-2021M1065203

PATIENT
  Sex: Male
  Weight: 75 kg

DRUGS (2)
  1. GLATIRAMER ACETATE [Suspect]
     Active Substance: GLATIRAMER ACETATE
     Indication: Multiple sclerosis
     Dosage: 40 MILLIGRAM, 3XW
     Route: 058
  2. DEVICE [Suspect]
     Active Substance: DEVICE
     Indication: Multiple sclerosis
     Dosage: UNK, 3XW (THREE TIMES A WEEK)
     Route: 065
     Dates: start: 2017

REACTIONS (2)
  - Injection site pain [Recovering/Resolving]
  - Device issue [Not Recovered/Not Resolved]
